FAERS Safety Report 19372419 (Version 3)
Quarter: 2022Q2

REPORT INFORMATION
  Report Type: Spontaneous
  Country: CZ (occurrence: None)
  Receive Date: 20210604
  Receipt Date: 20220518
  Transmission Date: 20220721
  Serious: Yes (Other)
  Sender: FDA-Public Use
  Company Number: 2021A474545

PATIENT
  Age: 58 Year
  Sex: Male

DRUGS (2)
  1. IMFINZI [Suspect]
     Active Substance: DURVALUMAB
     Indication: Lung neoplasm malignant
     Route: 041
     Dates: start: 20200902, end: 20210511
  2. ATROVENT [Concomitant]
     Active Substance: IPRATROPIUM BROMIDE

REACTIONS (6)
  - Ototoxicity [Unknown]
  - Ear discomfort [Unknown]
  - Tinnitus [Unknown]
  - Dyspnoea exertional [Unknown]
  - Productive cough [Unknown]
  - Palpitations [Unknown]

NARRATIVE: CASE EVENT DATE: 20210501
